FAERS Safety Report 8521206-6 (Version None)
Quarter: 2012Q3

REPORT INFORMATION
  Report Type: 
  Country: None (occurrence: None)
  Receive Date: 20120719
  Receipt Date: 20120710
  Transmission Date: 20120928
  Serious: Yes (Hospitalization)
  Sender: FDA-Public Use
  Company Number: DE-ROCHE-1086181

PATIENT
  Sex: Female
  Weight: 73 kg

DRUGS (6)
  1. L-THYROXIN 75 [Concomitant]
  2. HERCEPTIN [Suspect]
     Indication: BREAST CANCER
     Dosage: LAST DOSE PRIOR TO SAE ON 02/JUL/2012
     Route: 042
     Dates: start: 20120319
  3. DOXORUBICIN HCL [Suspect]
     Indication: BREAST CANCER
     Dosage: LAST DOSE PRIOR TO SAE ON 09/JUL/2012
     Route: 042
     Dates: start: 20120319
  4. PACLITAXEL [Suspect]
     Indication: BREAST CANCER
     Dosage: LAST DOSE PRIOR TO SAE ON 09/JUL/2012
     Route: 042
     Dates: start: 20120319
  5. LAPATINIB [Suspect]
     Indication: BREAST CANCER
     Dosage: LAST DOSE PRIOR TO SAE ON 16/APR/2012
     Route: 048
     Dates: start: 20120319
  6. RAMIPRIL [Concomitant]

REACTIONS (1)
  - PLEURISY [None]
